FAERS Safety Report 24455392 (Version 2)
Quarter: 2024Q4

REPORT INFORMATION
  Report Type: Report from Study
  Country: PE (occurrence: PE)
  Receive Date: 20241017
  Receipt Date: 20241018
  Transmission Date: 20250115
  Serious: No
  Sender: ROCHE
  Company Number: PE-ROCHE-3479355

PATIENT
  Age: 81 Year
  Sex: Male

DRUGS (1)
  1. MABTHERA [Suspect]
     Active Substance: RITUXIMAB
     Indication: B-cell lymphoma
     Dosage: 1(500MG) + 2(100MG). FREQUENCY WAS NOT REPORTED.
     Route: 041

REACTIONS (1)
  - General physical health deterioration [Unknown]
